FAERS Safety Report 16183763 (Version 1)
Quarter: 2019Q2

REPORT INFORMATION
  Report Type: Spontaneous
  Country: JP (occurrence: JP)
  Receive Date: 20190411
  Receipt Date: 20190411
  Transmission Date: 20190711
  Serious: Yes (Hospitalization)
  Sender: FDA-Public Use
  Company Number: JP-NOVAST LABORATORIES, LTD-JP-2019NOV000240

PATIENT
  Age: 28 Year
  Sex: Female

DRUGS (5)
  1. CARISOPRODOL\ASPIRIN [Suspect]
     Active Substance: ASPIRIN\CARISOPRODOL
     Indication: PRODUCT USED FOR UNKNOWN INDICATION
     Dosage: 100 MG, QD (BEGUN ON POSTPARTUM DAY 11)
     Route: 065
  2. VITAMIN K [Concomitant]
     Active Substance: PHYTONADIONE
     Indication: PRODUCT USED FOR UNKNOWN INDICATION
     Dosage: UNK
  3. WARFARIN [Suspect]
     Active Substance: WARFARIN
     Indication: PRODUCT USED FOR UNKNOWN INDICATION
     Dosage: 3 MG, QD (BEGUN ON POSTPARTUM DAY 11)
     Route: 048
  4. HEPARIN [Suspect]
     Active Substance: HEPARIN SODIUM
     Dosage: UNK, RE-STARTED ON POSTPARTUM DAY 4
  5. HEPARIN [Suspect]
     Active Substance: HEPARIN SODIUM
     Indication: THROMBOSIS PROPHYLAXIS
     Dosage: 500 U/H
     Route: 065

REACTIONS (1)
  - Postpartum haemorrhage [Recovered/Resolved]
